FAERS Safety Report 21890805 (Version 1)
Quarter: 2023Q1

REPORT INFORMATION
  Report Type: Spontaneous
  Country: US (occurrence: None)
  Receive Date: 20230119
  Receipt Date: 20230119
  Transmission Date: 20230418
  Serious: No
  Sender: FDA-Public Use
  Company Number: None

PATIENT
  Sex: Male
  Weight: 68.04 kg

DRUGS (6)
  1. LENALIDOMIDE [Suspect]
     Active Substance: LENALIDOMIDE
     Indication: Plasma cell myeloma
     Dosage: FREQUENCY : DAILY;?
     Route: 048
  2. ASPIRIN [Concomitant]
  3. BACTRIM DS [Concomitant]
  4. CLINDAMYCIN [Concomitant]
  5. SENOKOT EXTRA STRENGTH [Concomitant]
  6. ZOFRAN [Concomitant]

REACTIONS (2)
  - White blood cell count decreased [None]
  - Therapy interrupted [None]
